FAERS Safety Report 15279033 (Version 1)
Quarter: 2018Q3

REPORT INFORMATION
  Report Type: Report from Study
  Country: US (occurrence: US)
  Receive Date: 20180815
  Receipt Date: 20180815
  Transmission Date: 20181010
  Serious: Yes (Other)
  Sender: FDA-Public Use
  Company Number: US-BRISTOL-MYERS SQUIBB COMPANY-BMS-2018-072223

PATIENT
  Sex: Female

DRUGS (1)
  1. ABATACEPT [Suspect]
     Active Substance: ABATACEPT
     Indication: RHEUMATOID ARTHRITIS
     Route: 065

REACTIONS (8)
  - Pneumonia [Unknown]
  - Abdominal pain [Unknown]
  - Contraindicated product administered [Unknown]
  - Seizure [Unknown]
  - Respiratory disorder [Unknown]
  - Diarrhoea [Unknown]
  - Condition aggravated [Unknown]
  - Headache [Unknown]
